FAERS Safety Report 8578727-X (Version None)
Quarter: 2012Q3

REPORT INFORMATION
  Report Type: 
  Country: None (occurrence: None)
  Receive Date: 20120808
  Receipt Date: 20120801
  Transmission Date: 20120928
  Serious: No
  Sender: FDA-Public Use
  Company Number: US-PFIZER INC-2012093899

PATIENT
  Age: 69 Year
  Sex: Male
  Weight: 103 kg

DRUGS (18)
  1. NORCO [Suspect]
     Indication: BACK PAIN
     Dosage: AS NEEDED
     Dates: start: 20120413
  2. TYLENOL [Suspect]
     Dosage: UNK
  3. ALPRAZOLAM [Concomitant]
     Indication: ANXIETY
     Dosage: 0.5 MG, 1X/DAY
  4. PROTONIX [Concomitant]
     Indication: DYSPEPSIA
     Dosage: 40 MG, 1X/DAY
  5. FLONASE [Concomitant]
     Indication: HYPERSENSITIVITY
     Dosage: AS NEEDED
  6. SUTENT [Suspect]
     Indication: RENAL CELL CARCINOMA
     Dosage: 50 MG, CYCLIC DAILY
     Dates: start: 20120524, end: 20120531
  7. SUTENT [Suspect]
     Dosage: 50 MG, UNK
     Route: 048
     Dates: start: 20120716
  8. HYDROCHLOROTHIAZIDE [Concomitant]
     Indication: HYPERTENSION
     Dosage: 25 MG, 1X/DAY
     Dates: start: 19730101
  9. ZOMETA [Concomitant]
     Indication: BLOOD CALCIUM DECREASED
     Dosage: 4 MG, MONTHLY
     Route: 042
  10. ALAWAY [Concomitant]
     Indication: SEASONAL ALLERGY
     Dosage: AS NEEDED
  11. LOTREL [Concomitant]
     Indication: HYPERTENSION
     Dosage: 10/20 MG, 1X/DAY
     Dates: start: 19730101
  12. PROTONIX [Concomitant]
     Indication: GASTROOESOPHAGEAL REFLUX DISEASE
  13. SUTENT [Suspect]
     Indication: METASTATIC RENAL CELL CARCINOMA
     Dosage: 50 MG,DAILY (FOR 28 DAYS FOLLOWED BY REST OF 14 DAYS)
     Route: 048
     Dates: start: 20120412, end: 20120510
  14. LIPITOR [Concomitant]
     Dosage: 40 MG (FREQUENCY UNSPECIFIED)
  15. CLONIDINE [Concomitant]
     Indication: BLOOD PRESSURE SYSTOLIC ABNORMAL
     Dosage: AS NEEDED
     Dates: start: 19730101
  16. CARVEDILOL [Concomitant]
     Indication: HYPERTENSION
     Dosage: 25 MG, 2X/DAY
     Dates: start: 19730101
  17. METFORMIN [Concomitant]
     Indication: TYPE 2 DIABETES MELLITUS
     Dosage: 500 MG, 2X/DAY
  18. MORPHINE SULFATE [Concomitant]
     Indication: MUSCULOSKELETAL PAIN
     Dosage: 2X/DAY (EVERY 12 HOURS)
     Dates: start: 20120101

REACTIONS (9)
  - VERTIGO [None]
  - MUSCULOSKELETAL PAIN [None]
  - DYSPEPSIA [None]
  - PAIN IN EXTREMITY [None]
  - BACK PAIN [None]
  - BLOOD CREATININE INCREASED [None]
  - BLOOD BILIRUBIN INCREASED [None]
  - CONSTIPATION [None]
  - SOMNOLENCE [None]
